FAERS Safety Report 14532162 (Version 1)
Quarter: 2018Q1

REPORT INFORMATION
  Report Type: Report from Study
  Country: US (occurrence: US)
  Receive Date: 20180214
  Receipt Date: 20180214
  Transmission Date: 20180509
  Serious: Yes (Life-Threatening, Hospitalization)
  Sender: FDA-Public Use
  Company Number: US-ACTELION-A-NJ2017-165063

PATIENT
  Age: 67 Year
  Sex: Female

DRUGS (1)
  1. OPSUMIT [Suspect]
     Active Substance: MACITENTAN
     Indication: PULMONARY ARTERIAL HYPERTENSION
     Dosage: 10 MG, QD
     Route: 048
     Dates: start: 20171004

REACTIONS (8)
  - Drug ineffective [Unknown]
  - Nasal congestion [Unknown]
  - Acute right ventricular failure [Recovering/Resolving]
  - Hypoxia [Recovering/Resolving]
  - Unevaluable event [Recovering/Resolving]
  - Atrial fibrillation [Recovering/Resolving]
  - Nasopharyngitis [Unknown]
  - Acute respiratory failure [Recovering/Resolving]
